FAERS Safety Report 8813260 (Version 1)
Quarter: 2012Q4

REPORT INFORMATION
  Report Type: 
  Country: US (occurrence: US)
  Receive Date: 20120927
  Receipt Date: 20120927
  Transmission Date: 20130627
  Serious: No
  Sender: FDA-Public Use
  Company Number: US-AMGEN-USASP2012040883

PATIENT
  Age: 74 Year
  Sex: Female

DRUGS (7)
  1. PROLIA [Suspect]
     Indication: OSTEOPOROSIS POSTMENOPAUSAL
     Dosage: UNK UNK, q6mo
     Dates: start: 201206
  2. ZANTAC [Concomitant]
     Dosage: UNK UNK, bid
  3. TYLENOL /00020001/ [Concomitant]
     Dosage: UNK
  4. TYLENOL /00020001/ [Concomitant]
  5. CYMBALTA [Concomitant]
     Dosage: UNK
  6. CALTRATE                           /00751519/ [Concomitant]
     Dosage: UNK
  7. VITAMIN D /00107901/ [Concomitant]
     Dosage: UNK

REACTIONS (8)
  - Paraesthesia [Not Recovered/Not Resolved]
  - Arthralgia [Not Recovered/Not Resolved]
  - Myalgia [Recovered/Resolved]
  - Asthenia [Not Recovered/Not Resolved]
  - Abdominal discomfort [Not Recovered/Not Resolved]
  - Headache [Not Recovered/Not Resolved]
  - Fatigue [Not Recovered/Not Resolved]
  - Pain in extremity [Not Recovered/Not Resolved]
